FAERS Safety Report 8941190 (Version 1)
Quarter: 2012Q4

REPORT INFORMATION
  Report Type: 
  Country: US (occurrence: US)
  Receive Date: 20121203
  Receipt Date: 20121203
  Transmission Date: 20130627
  Serious: Yes (Other)
  Sender: FDA-Public Use
  Company Number: US-PFIZER INC-2012302150

PATIENT
  Age: 84 Year
  Sex: Female
  Weight: 51 kg

DRUGS (4)
  1. NORVASC [Suspect]
     Indication: BLOOD PRESSURE HIGH
     Dosage: 10 mg, daily
     Route: 048
  2. LIPITOR [Concomitant]
     Indication: HIGH CHOLESTEROL
     Dosage: 80 mg, daily
  3. ASPIRIN [Concomitant]
     Indication: PROPHYLAXIS
     Dosage: 81 mg, daily
  4. KLOR-CON M20 [Concomitant]
     Indication: BLOOD SODIUM DECREASED
     Dosage: UNK, daily

REACTIONS (3)
  - Fall [Unknown]
  - Wrist fracture [Unknown]
  - Poor quality drug administered [Unknown]
